FAERS Safety Report 22354501 (Version 1)
Quarter: 2023Q2

REPORT INFORMATION
  Report Type: Spontaneous
  Country: US (occurrence: None)
  Receive Date: 20230522
  Receipt Date: 20230522
  Transmission Date: 20230722
  Serious: Yes (Hospitalization)
  Sender: FDA-Public Use
  Company Number: None

PATIENT
  Sex: Female

DRUGS (1)
  1. ENOXAPARIN SODIUM [Suspect]
     Active Substance: ENOXAPARIN SODIUM
     Indication: Pulmonary embolism
     Dosage: 100MG ONCE DAILY UNDER THE SKIN?
     Route: 058
     Dates: start: 202109

REACTIONS (3)
  - Haemorrhage [None]
  - Contusion [None]
  - Haematoma [None]
